FAERS Safety Report 8580486-1 (Version None)
Quarter: 2012Q3

REPORT INFORMATION
  Report Type: 
  Country: None (occurrence: None)
  Receive Date: 20120808
  Receipt Date: 20120731
  Transmission Date: 20120928
  Serious: Yes (Hospitalization, Other)
  Sender: FDA-Public Use
  Company Number: JP-VERTEX PHARMACEUTICALS INC.-AE-2012-006745

PATIENT
  Age: 65 Year
  Sex: Male

DRUGS (9)
  1. BACTRIM [Concomitant]
     Route: 048
  2. PEG-INTRON [Concomitant]
     Indication: HEPATITIS C
     Route: 058
     Dates: start: 20120313, end: 20120404
  3. CELESTAMINE TAB [Concomitant]
     Route: 048
     Dates: end: 20120425
  4. TELAVIC [Suspect]
     Indication: HEPATITIS C
     Route: 048
     Dates: start: 20120313, end: 20120404
  5. ALDACTONE [Concomitant]
     Route: 048
     Dates: end: 20120501
  6. NEO-MINOPHAGEN C [Concomitant]
     Dates: start: 20120623
  7. URSO 250 [Concomitant]
     Route: 048
     Dates: start: 20120629
  8. REBETOL [Concomitant]
     Indication: HEPATITIS C
     Route: 048
     Dates: start: 20120313, end: 20120404
  9. LASIX [Concomitant]
     Route: 048
     Dates: end: 20120501

REACTIONS (6)
  - PANCREATITIS ACUTE [None]
  - HEPATIC FAILURE [None]
  - INTERSTITIAL LUNG DISEASE [None]
  - PSEUDOMEMBRANOUS COLITIS [None]
  - PLATELET COUNT DECREASED [None]
  - NEPHROTIC SYNDROME [None]
